FAERS Safety Report 15946486 (Version 1)
Quarter: 2019Q1

REPORT INFORMATION
  Report Type: Spontaneous
  Country: US (occurrence: US)
  Receive Date: 20190211
  Receipt Date: 20190211
  Transmission Date: 20190417
  Serious: Yes (Other)
  Sender: FDA-Public Use
  Company Number: US-AMGEN INC.-USASP2019020369

PATIENT

DRUGS (1)
  1. AIMOVIG [Suspect]
     Active Substance: ERENUMAB-AOOE
     Indication: PRODUCT USED FOR UNKNOWN INDICATION
     Dosage: 140 MG, UNK
     Route: 065
     Dates: start: 2018

REACTIONS (17)
  - Depression [Unknown]
  - Chills [Unknown]
  - Insomnia [Unknown]
  - Headache [Unknown]
  - Alopecia [Unknown]
  - Feeling abnormal [Unknown]
  - Suicidal ideation [Unknown]
  - Panic attack [Unknown]
  - Hypoaesthesia [Unknown]
  - Mania [Unknown]
  - Back pain [Unknown]
  - Musculoskeletal stiffness [Unknown]
  - Visual impairment [Unknown]
  - Tinnitus [Unknown]
  - Decreased appetite [Unknown]
  - Vertigo [Unknown]
  - Muscle spasms [Unknown]
